FAERS Safety Report 24438958 (Version 1)
Quarter: 2024Q4

REPORT INFORMATION
  Report Type: Spontaneous
  Country: US (occurrence: None)
  Receive Date: 20241014
  Receipt Date: 20241014
  Transmission Date: 20250115
  Serious: No
  Sender: Public
  Company Number: None

PATIENT
  Age: 22 Year
  Sex: Female
  Weight: 58.5 kg

DRUGS (3)
  1. NITROFURANTOIN MONOHYDRATE MACROCRYSTALS [Suspect]
     Active Substance: NITROFURANTOIN\NITROFURANTOIN MONOHYDRATE
     Indication: Urinary tract infection
     Dosage: OTHER QUANTITY : 1 CAPSULE(S);?FREQUENCY : TWICE A DAY;?
     Route: 048
     Dates: start: 20241008, end: 20241012
  2. EPIPEN [Concomitant]
     Active Substance: EPINEPHRINE
  3. ZYRTEC [Concomitant]
     Active Substance: CETIRIZINE HYDROCHLORIDE

REACTIONS (7)
  - Depression [None]
  - Anxiety [None]
  - Panic reaction [None]
  - Derealisation [None]
  - Therapy cessation [None]
  - Irritability [None]
  - Social avoidant behaviour [None]

NARRATIVE: CASE EVENT DATE: 20241011
